FAERS Safety Report 25019140 (Version 1)
Quarter: 2025Q1

REPORT INFORMATION
  Report Type: Spontaneous
  Country: GB (occurrence: GB)
  Receive Date: 20250227
  Receipt Date: 20250227
  Transmission Date: 20250409
  Serious: Yes (Other)
  Sender: BOEHRINGER INGELHEIM
  Company Number: None

PATIENT
  Age: 76 Year
  Sex: Male
  Weight: 95 kg

DRUGS (4)
  1. NINTEDANIB [Suspect]
     Active Substance: NINTEDANIB
     Indication: Pulmonary fibrosis
     Dates: start: 20241208
  2. GENERICS UK LOSARTAN 50 mg 1 mane [Concomitant]
     Indication: Hypertension
  3. Doxazosin 4mg 1 bd [Concomitant]
     Indication: Hypertension
  4. Symbicort 200/6 turbohaler [Concomitant]
     Indication: Pulmonary fibrosis

REACTIONS (1)
  - Constipation [Not Recovered/Not Resolved]

NARRATIVE: CASE EVENT DATE: 20241208
